FAERS Safety Report 8932878 (Version 1)
Quarter: 2012Q4

REPORT INFORMATION
  Report Type: Spontaneous
  Country: GB (occurrence: None)
  Receive Date: 20121119
  Receipt Date: 20121119
  Transmission Date: 20130627
  Serious: Yes (Life-Threatening, Hospitalization)
  Sender: FDA-Public Use
  Company Number: GB-010070

PATIENT
  Age: 10 Year
  Sex: Female

DRUGS (1)
  1. ZOMACTON [Suspect]
     Indication: GROWTH HORMONE DEFICIENCY
     Route: 058
     Dates: start: 201206, end: 20121105

REACTIONS (1)
  - Brain neoplasm [None]
